FAERS Safety Report 6955907 (Version 3)
Quarter: 2013Q3

REPORT INFORMATION
  Report Type: Report from Study
  Country: SI (occurrence: SI)
  Receive Date: 20090330
  Receipt Date: 20130718
  Transmission Date: 20140515
  Serious: Yes (Hospitalization)
  Sender: FDA-Public Use
  Company Number: SI-ROCHE-610374

PATIENT
  Age: 66 Year
  Sex: Female
  Weight: 56 kg

DRUGS (2)
  1. CAPECITABINE [Suspect]
     Indication: BREAST CANCER
     Dosage: 2X/DAY FROM DAYS 1 TO 14, WITHDRAWN FROM STUDY.?CUMULATIVE DOSE REPORTED AS 36400MG.
     Route: 048
     Dates: start: 20081211, end: 20090114
  2. DOCETAXEL [Suspect]
     Indication: BREAST CANCER
     Dosage: FREQUENCY: ON DAY 1, WITHDRAWN FROM STUDY.?CUMULATIVE DOSE REPORTED AS 110 MG.
     Route: 042
     Dates: start: 20081211, end: 20090114

REACTIONS (2)
  - Liver disorder [Recovered/Resolved]
  - Cholelithiasis [Recovered/Resolved]
